FAERS Safety Report 19575019 (Version 1)
Quarter: 2021Q3

REPORT INFORMATION
  Report Type: Report from Study
  Country: US (occurrence: US)
  Receive Date: 20210719
  Receipt Date: 20210719
  Transmission Date: 20211014
  Serious: No
  Sender: FDA-Public Use
  Company Number: US-VANDA PHARMACEUTICALS, INC-2021TASUS004615

PATIENT
  Sex: Female
  Weight: 59.59 kg

DRUGS (1)
  1. HETLIOZ [Suspect]
     Active Substance: TASIMELTEON
     Indication: NON-24-HOUR SLEEP-WAKE DISORDER
     Dosage: 20 MILLIGRAM QHS
     Route: 048

REACTIONS (4)
  - Product dose omission issue [Unknown]
  - Nausea [Unknown]
  - Anxiety [Unknown]
  - Product use issue [Unknown]
